FAERS Safety Report 23943237 (Version 2)
Quarter: 2024Q2

REPORT INFORMATION
  Report Type: Spontaneous
  Country: GR (occurrence: GR)
  Receive Date: 20240605
  Receipt Date: 20240607
  Transmission Date: 20240716
  Serious: Yes (Death, Life-Threatening, Hospitalization, Other)
  Sender: FDA-Public Use
  Company Number: GR-009507513-2406GRC000307

PATIENT
  Age: 77 Year
  Sex: Female

DRUGS (3)
  1. KEYTRUDA [Suspect]
     Active Substance: PEMBROLIZUMAB
     Indication: Malignant melanoma
  2. INSULIN NOS [Concomitant]
     Active Substance: INSULIN NOS
  3. VITAMINS NOS [Concomitant]
     Active Substance: VITAMINS

REACTIONS (16)
  - Death [Fatal]
  - Myocarditis [Unknown]
  - Hepatitis [Unknown]
  - Arrhythmia [Unknown]
  - Syncope [Unknown]
  - Pneumonitis [Unknown]
  - Cardiac arrest [Unknown]
  - Tracheostomy [Unknown]
  - Haemorrhage [Unknown]
  - Hypoxia [Unknown]
  - Diarrhoea [Unknown]
  - Back pain [Unknown]
  - Bone pain [Unknown]
  - Gastritis [Unknown]
  - Abdominal distension [Unknown]
  - Ill-defined disorder [Unknown]

NARRATIVE: CASE EVENT DATE: 20240101
